FAERS Safety Report 19257570 (Version 1)
Quarter: 2021Q2

REPORT INFORMATION
  Report Type: Spontaneous
  Country: US (occurrence: US)
  Receive Date: 20210513
  Receipt Date: 20210513
  Transmission Date: 20210717
  Serious: Yes (Hospitalization)
  Sender: FDA-Public Use
  Company Number: None

PATIENT
  Sex: Male

DRUGS (10)
  1. LEVOFLOXACIN. [Concomitant]
     Active Substance: LEVOFLOXACIN
  2. METRONIDAZOLE. [Concomitant]
     Active Substance: METRONIDAZOLE
  3. SIMVASTATIN. [Concomitant]
     Active Substance: SIMVASTATIN
  4. METFORMIN [Concomitant]
     Active Substance: METFORMIN HYDROCHLORIDE
  5. BISACODYL. [Concomitant]
     Active Substance: BISACODYL
  6. ONDANSETRON [Concomitant]
     Active Substance: ONDANSETRON
  7. GLIPZIDE [Concomitant]
     Active Substance: GLIPIZIDE
  8. CAPECITABINE 500 MG TAB [Suspect]
     Active Substance: CAPECITABINE
     Indication: RECTAL CANCER
     Dosage: OTHER FREQUENCY:QAM/QPM FOR 2 WKS;?
     Route: 048
     Dates: start: 20200501
  9. CALCIUM [Concomitant]
     Active Substance: CALCIUM
  10. PROCHLORPER [Concomitant]

REACTIONS (3)
  - Nausea [None]
  - Illness [None]
  - Therapy interrupted [None]
